FAERS Safety Report 5996892-5 (Version None)
Quarter: 2008Q4

REPORT INFORMATION
  Report Type: 
  Country: None (occurrence: None)
  Receive Date: 20081212
  Receipt Date: 20081117
  Transmission Date: 20090506
  Serious: No
  Sender: FDA-Public Use
  Company Number: US-ABBOTT-08P-163-0484360-00

PATIENT
  Sex: Female
  Weight: 56.75 kg

DRUGS (19)
  1. HUMIRA [Suspect]
     Indication: CROHN'S DISEASE
     Route: 058
     Dates: start: 20080801, end: 20081028
  2. HUMIRA [Suspect]
     Route: 058
     Dates: start: 20081028
  3. VICODIN [Concomitant]
     Indication: PAIN
     Route: 048
  4. VICODIN [Concomitant]
     Route: 048
  5. DICYCLOMINE HCL [Concomitant]
     Indication: GASTRIC DISORDER
     Route: 048
  6. GABAPENTIN [Concomitant]
     Indication: CROHN'S DISEASE
     Route: 048
  7. LOMOTIL [Concomitant]
     Indication: CROHN'S DISEASE
     Dosage: 4 -2.5 MILLIGRAM TABLETS
     Route: 048
  8. METRONIDAZOLE [Concomitant]
     Indication: DRUG USE FOR UNKNOWN INDICATION
     Route: 048
  9. LISINOPRIL [Concomitant]
     Indication: HEADACHE
     Route: 048
  10. OMEPRAZOLE [Concomitant]
     Indication: GASTRIC DISORDER
     Route: 048
  11. ALUDROX [Concomitant]
     Indication: DRUG USE FOR UNKNOWN INDICATION
     Route: 048
  12. LACTOBACILLUS ACIDOPHILUS [Concomitant]
     Indication: DRUG USE FOR UNKNOWN INDICATION
     Route: 048
  13. DIAZEPAM [Concomitant]
     Indication: RELAXATION THERAPY
     Route: 048
  14. SERTRALINE [Concomitant]
     Indication: DEPRESSION
     Route: 048
  15. GLICLAZIDE [Concomitant]
     Indication: HYPERSENSITIVITY
     Route: 048
  16. ALEGRA D [Concomitant]
     Indication: HYPERSENSITIVITY
     Route: 048
  17. ALBUTEROL SULFATE [Concomitant]
     Indication: ASTHMA
     Route: 055
  18. BACTRIM [Concomitant]
     Indication: MIGRAINE
     Route: 048
  19. SUMATRIPTAN [Concomitant]
     Indication: MIGRAINE
     Route: 048

REACTIONS (3)
  - CROHN'S DISEASE [None]
  - DRUG INEFFECTIVE [None]
  - STRESS [None]
